FAERS Safety Report 14567642 (Version 3)
Quarter: 2018Q2

REPORT INFORMATION
  Report Type: Spontaneous
  Country: ES (occurrence: CA)
  Receive Date: 20180223
  Receipt Date: 20180607
  Transmission Date: 20180711
  Serious: Yes (Life-Threatening, Other)
  Sender: FDA-Public Use
  Company Number: ES-ASTRAZENECA-2018SE23485

PATIENT
  Age: 57 Year
  Sex: Female

DRUGS (3)
  1. QUETIAPINE FUMARATE. [Suspect]
     Active Substance: QUETIAPINE FUMARATE
     Route: 048
  2. VALPROATE SODIUM. [Suspect]
     Active Substance: VALPROATE SODIUM
     Route: 065
  3. NIFEDIPINE. [Suspect]
     Active Substance: NIFEDIPINE
     Dosage: NON-AZ PRODUCT
     Route: 065

REACTIONS (2)
  - Coma [Unknown]
  - Hypotension [Unknown]
